FAERS Safety Report 23493469 (Version 1)
Quarter: 2024Q1

REPORT INFORMATION
  Report Type: Spontaneous
  Country: US (occurrence: US)
  Receive Date: 20240207
  Receipt Date: 20240207
  Transmission Date: 20240409
  Serious: No
  Sender: FDA-Public Use
  Company Number: US-BRISTOL-MYERS SQUIBB COMPANY-2024-018845

PATIENT
  Age: 38 Year
  Sex: Male
  Weight: 113.4 kg

DRUGS (2)
  1. CAMZYOS [Suspect]
     Active Substance: MAVACAMTEN
     Indication: Hypertrophic cardiomyopathy
     Dosage: DOSE : UNKNOWN;     FREQ : ^HE HAS BEEN TAKING IT INCONSISTENTLY, ABOUT EVERY 48 HOURS.^
     Route: 048
  2. METOPROLOL [Concomitant]
     Active Substance: METOPROLOL
     Indication: Product used for unknown indication

REACTIONS (2)
  - Treatment noncompliance [Unknown]
  - Transvalvular pressure gradient increased [Unknown]

NARRATIVE: CASE EVENT DATE: 20240126
